FAERS Safety Report 4305066-5 (Version None)
Quarter: 2004Q1

REPORT INFORMATION
  Report Type: 
  Country: None (occurrence: None)
  Receive Date: 20040224
  Receipt Date: 20040224
  Transmission Date: 20041129
  Serious: Yes (Hospitalization)
  Sender: FDA-Public Use
  Company Number: None

PATIENT
  Age: 85 Year
  Sex: Female

DRUGS (4)
  1. CITALOPRAM [Suspect]
     Indication: DEPRESSION
     Dosage: 20 MG PO QD
     Route: 048
  2. VENLAFAXINE HCL [Suspect]
     Indication: DEPRESSION
     Dosage: 75 M PO HS
     Route: 048
  3. SINEMET [Concomitant]
  4. LANSOPRAZOLE [Concomitant]

REACTIONS (2)
  - CONFUSIONAL STATE [None]
  - SEROTONIN SYNDROME [None]
